FAERS Safety Report 9175219 (Version 1)
Quarter: 2013Q1

REPORT INFORMATION
  Report Type: Spontaneous
  Country: FR (occurrence: FR)
  Receive Date: 20130320
  Receipt Date: 20130320
  Transmission Date: 20140127
  Serious: Yes (Hospitalization)
  Sender: FDA-Public Use
  Company Number: FR-BRISTOL-MYERS SQUIBB COMPANY-17468323

PATIENT
  Age: 66 Year
  Sex: Male

DRUGS (1)
  1. ONGLYZA TABS [Suspect]
     Indication: TYPE 2 DIABETES MELLITUS
     Route: 048
     Dates: start: 20101123, end: 20130220

REACTIONS (1)
  - Malignant neoplasm of ampulla of Vater [Recovered/Resolved]
